FAERS Safety Report 17328405 (Version 2)
Quarter: 2020Q1

REPORT INFORMATION
  Report Type: Spontaneous
  Country: IT (occurrence: IT)
  Receive Date: 20200127
  Receipt Date: 20200314
  Transmission Date: 20200409
  Serious: Yes (Other)
  Sender: FDA-Public Use
  Company Number: IT-AMGEN-ITASP2020010989

PATIENT

DRUGS (2)
  1. NEULASTA [Suspect]
     Active Substance: PEGFILGRASTIM
     Indication: PROPHYLAXIS
     Dosage: 6 MILLIGRAM (ON DAY 5 AFTER APBSCT)
     Route: 058
  2. GRANULOKINE [Suspect]
     Active Substance: FILGRASTIM
     Indication: PROPHYLAXIS
     Dosage: 5 MICROGRAM/KILOGRAM, QD (ON DAY 5 AFTER PBSC INFUSION)
     Route: 058

REACTIONS (5)
  - Bone pain [Unknown]
  - Thrombocytopenia [Unknown]
  - Neutropenia [Unknown]
  - Febrile neutropenia [Unknown]
  - Mucosal inflammation [Unknown]
